FAERS Safety Report 20455355 (Version 1)
Quarter: 2022Q1

REPORT INFORMATION
  Report Type: Spontaneous
  Country: US (occurrence: None)
  Receive Date: 20220210
  Receipt Date: 20220210
  Transmission Date: 20220423
  Serious: Yes (Life-Threatening)
  Sender: FDA-Public Use
  Company Number: None

PATIENT
  Age: 40 Year
  Sex: Female
  Weight: 61.69 kg

DRUGS (1)
  1. CEFEPIME HYDROCHLORIDE [Suspect]
     Active Substance: CEFEPIME HYDROCHLORIDE
     Indication: Sepsis
     Dosage: FREQUENCY : TWICE A DAY;?
     Route: 042
     Dates: start: 20220115, end: 20220120

REACTIONS (7)
  - Seizure [None]
  - Syncope [None]
  - Fall [None]
  - Head injury [None]
  - Hypotension [None]
  - Abdominal pain [None]
  - Coma [None]

NARRATIVE: CASE EVENT DATE: 20220119
